FAERS Safety Report 8438895 (Version 7)
Quarter: 2014Q3

REPORT INFORMATION
  Report Type: Spontaneous
  Country: US (occurrence: US)
  Receive Date: 20120302
  Receipt Date: 20140728
  Transmission Date: 20150326
  Serious: Yes (Hospitalization, Disabling, Other)
  Sender: FDA-Public Use
  Company Number: US-009507513-1202USA04374

PATIENT
  Sex: Female

DRUGS (5)
  1. FOSAMAX [Suspect]
     Active Substance: ALENDRONATE SODIUM
     Dosage: UNK
     Route: 048
     Dates: end: 2006
  2. FOSAMAX [Suspect]
     Active Substance: ALENDRONATE SODIUM
     Indication: OSTEOPENIA
     Dosage: 70 MG, QW
     Route: 048
  3. VITAMINS (UNSPECIFIED) [Concomitant]
     Active Substance: VITAMINS
     Dosage: UNK
     Dates: start: 1995
  4. FOSAMAX [Suspect]
     Active Substance: ALENDRONATE SODIUM
     Indication: OSTEOPENIA
     Dosage: 70 MG, QW
     Route: 048
     Dates: end: 2006
  5. BONIVA [Suspect]
     Active Substance: IBANDRONATE SODIUM
     Indication: OSTEOPENIA
     Dosage: 150 MG, QM
     Route: 048
     Dates: start: 200605, end: 200703

REACTIONS (46)
  - Asthma [Not Recovered/Not Resolved]
  - Tendinous contracture [Unknown]
  - Appendix disorder [Unknown]
  - Bone marrow oedema [Unknown]
  - Joint effusion [Unknown]
  - Hepatic cirrhosis [Unknown]
  - Anaemia [Unknown]
  - Foot deformity [Unknown]
  - Arthralgia [Unknown]
  - Pancytopenia [Unknown]
  - Impaired healing [Unknown]
  - Diverticulum [Unknown]
  - Osteoporosis [Unknown]
  - Joint range of motion decreased [Unknown]
  - Insomnia [Unknown]
  - Back pain [Unknown]
  - Oophorectomy [Unknown]
  - Splenomegaly [Unknown]
  - Increased tendency to bruise [Unknown]
  - Vitamin D deficiency [Unknown]
  - Pain in extremity [Unknown]
  - Drug hypersensitivity [Unknown]
  - Femur fracture [Not Recovered/Not Resolved]
  - Lower limb fracture [Unknown]
  - Myelodysplastic syndrome [Recovering/Resolving]
  - Cartilage injury [Unknown]
  - Spinal osteoarthritis [Unknown]
  - Thrombocytopenia [Recovering/Resolving]
  - Bone marrow disorder [Unknown]
  - Liver disorder [Unknown]
  - Low turnover osteopathy [Unknown]
  - Intervertebral disc protrusion [Unknown]
  - Nervousness [Unknown]
  - Constipation [Unknown]
  - Arthritis [Not Recovered/Not Resolved]
  - Arthropathy [Unknown]
  - Meniscus injury [Unknown]
  - Pain [Unknown]
  - Fatigue [Unknown]
  - Leukopenia [Recovering/Resolving]
  - Hyporeflexia [Unknown]
  - Abdominal pain [Unknown]
  - Chondromalacia [Unknown]
  - Overweight [Unknown]
  - Hysterectomy [Unknown]
  - Tooth extraction [Unknown]

NARRATIVE: CASE EVENT DATE: 1996
